FAERS Safety Report 19259588 (Version 1)
Quarter: 2021Q2

REPORT INFORMATION
  Report Type: Spontaneous
  Country: UG (occurrence: UG)
  Receive Date: 20210514
  Receipt Date: 20210514
  Transmission Date: 20210717
  Serious: Yes (Other)
  Sender: FDA-Public Use
  Company Number: UG-POPULATION COUNCIL-2020TPC000009

PATIENT
  Age: 38 Year
  Sex: Female

DRUGS (2)
  1. JADELLE [Suspect]
     Active Substance: LEVONORGESTREL
     Indication: CONTRACEPTION
     Route: 058
     Dates: start: 20180421, end: 20200811
  2. DIACEREIN [Concomitant]
     Active Substance: DIACEREIN
     Indication: HIV INFECTION

REACTIONS (2)
  - Pregnancy with implant contraceptive [Not Recovered/Not Resolved]
  - Drug ineffective [Unknown]

NARRATIVE: CASE EVENT DATE: 20200811
